FAERS Safety Report 22599231 (Version 2)
Quarter: 2024Q1

REPORT INFORMATION
  Report Type: Other
  Country: AT (occurrence: None)
  Receive Date: 20230614
  Receipt Date: 20240119
  Transmission Date: 20240410
  Serious: No
  Sender: FDA-Public Use
  Company Number: AT-ROCHE-3368093

PATIENT
  Age: 46 Year
  Sex: Female

DRUGS (15)
  1. OCRELIZUMAB [Suspect]
     Active Substance: OCRELIZUMAB
     Indication: Primary progressive multiple sclerosis
     Route: 042
     Dates: start: 20190429, end: 20190429
  2. OCRELIZUMAB [Suspect]
     Active Substance: OCRELIZUMAB
     Dosage: TOTAL VOLUME ADMINISTERED 500 ML
     Route: 042
     Dates: start: 20230517, end: 20230517
  3. OCRELIZUMAB [Suspect]
     Active Substance: OCRELIZUMAB
     Dosage: TOTAL VOLUME ADMINISTERED 250 ML
     Route: 042
     Dates: start: 20190513, end: 20190513
  4. OCRELIZUMAB [Suspect]
     Active Substance: OCRELIZUMAB
     Dosage: TOTAL VOLUME ADMINISTERED 500 ML
     Route: 042
     Dates: start: 20210111, end: 20210111
  5. OCRELIZUMAB [Suspect]
     Active Substance: OCRELIZUMAB
     Dosage: TOTAL VOLUME ADMINISTERED 500 ML
     Route: 042
     Dates: start: 20200622, end: 20200622
  6. OCRELIZUMAB [Suspect]
     Active Substance: OCRELIZUMAB
     Dosage: TOTAL VOLUME ADMINISTERED 500 ML
     Route: 042
     Dates: start: 20210909, end: 20210909
  7. OCRELIZUMAB [Suspect]
     Active Substance: OCRELIZUMAB
     Dosage: TOTAL VOLUME ADMINISTERED 500 ML
     Route: 042
     Dates: start: 20220912, end: 20220912
  8. OCRELIZUMAB [Suspect]
     Active Substance: OCRELIZUMAB
     Dosage: TOTAL VOLUME ADMINISTERED 520 ML
     Route: 042
     Dates: start: 20191118, end: 20191118
  9. OCRELIZUMAB [Suspect]
     Active Substance: OCRELIZUMAB
     Dosage: TOTAL VOLUME ADMINISTERED 500 ML
     Route: 042
     Dates: start: 20220309, end: 20220309
  10. OCRELIZUMAB [Suspect]
     Active Substance: OCRELIZUMAB
     Dosage: TOTAL VOLUME ADMINISTERED 500 ML
     Route: 042
     Dates: start: 20240103, end: 20240103
  11. NEBIVOLOL HYDROCHLORIDE [Concomitant]
     Active Substance: NEBIVOLOL HYDROCHLORIDE
     Route: 048
  12. AGLANDIN (AUSTRIA) [Concomitant]
     Route: 048
  13. GINKGO [Concomitant]
     Active Substance: GINKGO
     Route: 048
     Dates: start: 20200603
  14. FOSFOMYCIN TROMETHAMINE [Concomitant]
     Active Substance: FOSFOMYCIN TROMETHAMINE
     Route: 048
     Dates: start: 20190429
  15. CHOLECALCIFEROL [Concomitant]
     Active Substance: CHOLECALCIFEROL
     Indication: Vitamin D deficiency
     Route: 048
     Dates: end: 202202

REACTIONS (1)
  - COVID-19 [Recovered/Resolved]

NARRATIVE: CASE EVENT DATE: 20220301
